FAERS Safety Report 4862132-3 (Version None)
Quarter: 2005Q4

REPORT INFORMATION
  Report Type: 
  Country: None (occurrence: None)
  Receive Date: 20051221
  Receipt Date: 20051209
  Transmission Date: 20060501
  Serious: Yes (Other)
  Sender: FDA-Public Use
  Company Number: CA-BRISTOL-MYERS SQUIBB COMPANY-13220025

PATIENT
  Age: 78 Year
  Sex: Female

DRUGS (11)
  1. TEQUIN [Suspect]
     Route: 048
  2. ASPIRIN [Concomitant]
  3. ATACAND [Concomitant]
  4. ATIVAN [Concomitant]
  5. CALCIUM GLUCONATE [Concomitant]
  6. CARDIZEM CD [Concomitant]
  7. DIAMICRON [Concomitant]
  8. HYDROCHLOROTHIAZIDE [Concomitant]
  9. LIPITOR [Concomitant]
  10. TYLENOL [Concomitant]
  11. VITAMIN D [Concomitant]

REACTIONS (1)
  - HYPERGLYCAEMIA [None]
